FAERS Safety Report 23262145 (Version 1)
Quarter: 2023Q4

REPORT INFORMATION
  Report Type: Spontaneous
  Country: UY (occurrence: UY)
  Receive Date: 20231205
  Receipt Date: 20231205
  Transmission Date: 20240110
  Serious: No
  Sender: FDA-Public Use
  Company Number: UY-PFIZER INC-PV202300187873

PATIENT
  Age: 9 Year
  Sex: Female

DRUGS (1)
  1. GENOTROPIN [Suspect]
     Active Substance: SOMATROPIN
     Indication: Short stature
     Dosage: UNK (0.6 TO 1MG 7 TIMES PER WEEK)
     Dates: start: 20230912

REACTIONS (2)
  - Device physical property issue [Unknown]
  - Needle issue [Unknown]
